FAERS Safety Report 7380842-3 (Version None)
Quarter: 2011Q1

REPORT INFORMATION
  Report Type: 
  Country: None (occurrence: None)
  Receive Date: 20110329
  Receipt Date: 20110323
  Transmission Date: 20110831
  Serious: Yes (Other)
  Sender: FDA-Public Use
  Company Number: B0707757A

PATIENT
  Sex: Male

DRUGS (6)
  1. ATACAND [Suspect]
     Route: 048
     Dates: start: 20070101
  2. PREVISCAN [Suspect]
     Dosage: 20MG PER DAY
     Route: 048
     Dates: start: 20060101
  3. NEBIVOLOL HCL [Suspect]
     Dosage: 5MG PER DAY
     Route: 048
     Dates: start: 20070101
  4. PANDEMRIX H1N1 [Suspect]
     Indication: PROPHYLAXIS
     Route: 030
     Dates: start: 20091201, end: 20091201
  5. INSPRA [Suspect]
     Dosage: 50MG PER DAY
     Route: 048
     Dates: start: 20090101
  6. DIGOXIN [Suspect]
     Indication: ARRHYTHMIA
     Dosage: .25MG UNKNOWN
     Route: 048
     Dates: start: 20060101

REACTIONS (2)
  - TESTICULAR SWELLING [None]
  - TESTICULAR SEMINOMA (PURE) [None]
